FAERS Safety Report 21952645 (Version 1)
Quarter: 2023Q1

REPORT INFORMATION
  Report Type: Spontaneous
  Country: JP (occurrence: JP)
  Receive Date: 20230203
  Receipt Date: 20230203
  Transmission Date: 20230418
  Serious: Yes (Death)
  Sender: FDA-Public Use
  Company Number: JP-EXELIXIS-CABO-22052376

PATIENT
  Age: 13 Year
  Sex: Male

DRUGS (1)
  1. CABOMETYX [Suspect]
     Active Substance: CABOZANTINIB S-MALATE
     Indication: Colorectal cancer
     Dosage: 60 MG, QD

REACTIONS (2)
  - Malignant neoplasm progression [Fatal]
  - Off label use [Unknown]
